FAERS Safety Report 8077333-3 (Version None)
Quarter: 2012Q1

REPORT INFORMATION
  Report Type: 
  Country: None (occurrence: None)
  Receive Date: 20120126
  Receipt Date: 20120126
  Transmission Date: 20120608
  Serious: No
  Sender: FDA-Public Use
  Company Number: None

PATIENT
  Sex: Male
  Weight: 147.6 kg

DRUGS (3)
  1. ELOXATIN [Suspect]
     Dosage: 268 MG
     Dates: end: 20111216
  2. LEUCOVORIN CALCIUM [Suspect]
     Dosage: 1264 MG
     Dates: end: 20111216
  3. FLUOROURACIL [Suspect]
     Dosage: 7616 MG
     Dates: end: 20111202

REACTIONS (5)
  - URINE PROTEIN/CREATININE RATIO ABNORMAL [None]
  - METASTASES TO LUNG [None]
  - ANAPHYLACTIC REACTION [None]
  - BLOOD PRESSURE INCREASED [None]
  - METASTASES TO LIVER [None]
